FAERS Safety Report 8530950-6 (Version None)
Quarter: 2012Q3

REPORT INFORMATION
  Report Type: 
  Country: None (occurrence: None)
  Receive Date: 20120723
  Receipt Date: 20120712
  Transmission Date: 20120928
  Serious: Yes (Hospitalization)
  Sender: FDA-Public Use
  Company Number: BR-ASTRAZENECA-2012SE43968

PATIENT
  Age: 89 Year
  Sex: Female

DRUGS (3)
  1. ATACAND HCT [Suspect]
     Indication: HYPERTENSION
     Dosage: 16/12.5 MG DAILY
     Route: 048
     Dates: end: 20120601
  2. ATACAND HCT [Suspect]
     Indication: HYPERTENSION
     Dosage: 16MG/2,5 MG DAILY
     Route: 048
     Dates: start: 20120601
  3. METFORMIN HYDROCHLORIDE [Concomitant]
     Indication: DIABETES MELLITUS
     Route: 048

REACTIONS (4)
  - DRUG INEFFECTIVE [None]
  - DIABETES MELLITUS INADEQUATE CONTROL [None]
  - URINARY TRACT INFECTION [None]
  - HYPERTENSION [None]
